FAERS Safety Report 19068563 (Version 1)
Quarter: 2021Q1

REPORT INFORMATION
  Report Type: Spontaneous
  Country: US (occurrence: US)
  Receive Date: 20210327
  Receipt Date: 20210327
  Transmission Date: 20210420
  Serious: Yes (Disabling)
  Sender: FDA-Public Use
  Company Number: None

PATIENT
  Age: 26 Year
  Sex: Male
  Weight: 78.75 kg

DRUGS (4)
  1. TADALAFIL. [Concomitant]
     Active Substance: TADALAFIL
  2. LEVOTHYROXINE. [Concomitant]
     Active Substance: LEVOTHYROXINE
  3. ONE A DAY FOR MEN ? VITAMIN [Concomitant]
  4. FINASTERIDE. [Suspect]
     Active Substance: FINASTERIDE
     Indication: ANDROGENETIC ALOPECIA
     Dosage: ?          QUANTITY:1 CAPSULE(S);?
     Route: 048
     Dates: start: 20190901, end: 20200120

REACTIONS (11)
  - Emotional disorder [None]
  - Depression [None]
  - Sexual dysfunction [None]
  - Tremor [None]
  - Mental disorder [None]
  - Feeling abnormal [None]
  - Therapeutic product effect incomplete [None]
  - Obsessive-compulsive disorder [None]
  - Dyspnoea [None]
  - Panic attack [None]
  - Sleep disorder [None]

NARRATIVE: CASE EVENT DATE: 20200324
